FAERS Safety Report 6644966-8 (Version None)
Quarter: 2010Q1

REPORT INFORMATION
  Report Type: 
  Country: None (occurrence: None)
  Receive Date: 20100322
  Receipt Date: 20100310
  Transmission Date: 20100710
  Serious: Yes (Hospitalization, Other)
  Sender: FDA-Public Use
  Company Number: PHHY2010JP14651

PATIENT
  Age: 64 Year
  Sex: Male

DRUGS (1)
  1. GLEEVEC [Suspect]
     Indication: GASTROINTESTINAL STROMAL TUMOUR
     Dosage: 400 MG DAILY
     Route: 048

REACTIONS (12)
  - ANAEMIA [None]
  - DISSEMINATED INTRAVASCULAR COAGULATION [None]
  - DIZZINESS EXERTIONAL [None]
  - GASTROINTESTINAL STROMAL TUMOUR [None]
  - HAEMORRHAGE SUBCUTANEOUS [None]
  - MALAISE [None]
  - NEOPLASM RECURRENCE [None]
  - OEDEMA PERIPHERAL [None]
  - PLATELET COUNT DECREASED [None]
  - PROTHROMBIN TIME RATIO DECREASED [None]
  - THERAPEUTIC EMBOLISATION [None]
  - TUMOUR HAEMORRHAGE [None]
